FAERS Safety Report 19414289 (Version 2)
Quarter: 2021Q2

REPORT INFORMATION
  Report Type: Report from Study
  Country: DE (occurrence: DE)
  Receive Date: 20210615
  Receipt Date: 20210622
  Transmission Date: 20210717
  Serious: Yes (Hospitalization, Other)
  Sender: FDA-Public Use
  Company Number: DE-GILEAD-2021-0535588

PATIENT
  Sex: Female
  Weight: 80 kg

DRUGS (26)
  1. ORENCIA [Concomitant]
     Active Substance: ABATACEPT
  2. RAMIPRIL. [Concomitant]
     Active Substance: RAMIPRIL
  3. FEMANNOSE [Concomitant]
  4. VIGANTOLETTEN [Concomitant]
     Active Substance: CHOLECALCIFEROL
  5. NIFEDIPIN [Concomitant]
     Active Substance: NIFEDIPINE
  6. PANTOPRAZOL A [Concomitant]
  7. TRAMAL [Concomitant]
     Active Substance: TRAMADOL
  8. PARACETAMOL [Concomitant]
     Active Substance: ACETAMINOPHEN
  9. SECUKINUMAB. [Concomitant]
     Active Substance: SECUKINUMAB
     Dosage: UNK
     Dates: start: 20161013, end: 20170526
  10. ALENDRONIC ACID [Concomitant]
     Active Substance: ALENDRONIC ACID
  11. CITALOPRAM [Concomitant]
     Active Substance: CITALOPRAM HYDROBROMIDE
  12. OXYCODON [Concomitant]
     Active Substance: OXYCODONE
  13. DAIVOBET [Concomitant]
     Active Substance: BETAMETHASONE DIPROPIONATE\CALCIPOTRIENE
  14. SERTRALINE [Concomitant]
     Active Substance: SERTRALINE HYDROCHLORIDE
  15. PREDNISOLON [PREDNISOLONE] [Concomitant]
     Active Substance: PREDNISOLONE
  16. METAMIZOLE [Concomitant]
     Active Substance: METAMIZOLE
  17. LEDIPASVIR/SOFOSBUVIR [Suspect]
     Active Substance: LEDIPASVIR\SOFOSBUVIR
     Indication: CHRONIC HEPATITIS C
     Dosage: 90 MG, QD
     Route: 048
     Dates: start: 20150219, end: 20150513
  18. DICLOFENAC [Concomitant]
     Active Substance: DICLOFENAC
  19. HYDROMORPHONE [Concomitant]
     Active Substance: HYDROMORPHONE
  20. MOVICOL NEUTRAL [Concomitant]
     Active Substance: POLYETHYLENE GLYCOL 3350\POTASSIUM CHLORIDE\SODIUM BICARBONATE\SODIUM CHLORIDE
  21. TARGIN [Concomitant]
     Active Substance: NALOXONE HYDROCHLORIDE\OXYCODONE HYDROCHLORIDE
     Dosage: UNK
     Dates: start: 20170526
  22. ETANERCEPT [Concomitant]
     Active Substance: ETANERCEPT
  23. DENOSUMAB [Concomitant]
     Active Substance: DENOSUMAB
  24. DULCOLAX BALANCE [Concomitant]
     Active Substance: POLYETHYLENE GLYCOL 3350
  25. EUTHYROX [Concomitant]
     Active Substance: LEVOTHYROXINE SODIUM
  26. HCT [Concomitant]
     Active Substance: HYDROCHLOROTHIAZIDE

REACTIONS (2)
  - Urinary tract infection [Recovered/Resolved]
  - Pneumonia [Recovering/Resolving]

NARRATIVE: CASE EVENT DATE: 2020
